FAERS Safety Report 5971715-9 (Version None)
Quarter: 2008Q4

REPORT INFORMATION
  Report Type: 
  Country: None (occurrence: None)
  Receive Date: 20081126
  Receipt Date: 20081126
  Transmission Date: 20090506
  Serious: Yes (Hospitalization)
  Sender: FDA-Public Use
  Company Number: None

PATIENT
  Sex: Male
  Weight: 87.27 kg

DRUGS (2)
  1. CASODEX [Suspect]
     Dosage: 3250 MG
  2. LEUPROLIDE ACETATE [Suspect]
     Dosage: 30 MG

REACTIONS (1)
  - MYOCARDIAL INFARCTION [None]
